FAERS Safety Report 6401138-X (Version None)
Quarter: 2009Q4

REPORT INFORMATION
  Report Type: 
  Country: None (occurrence: None)
  Receive Date: 20091015
  Receipt Date: 20070516
  Transmission Date: 20100525
  Serious: Yes (Disabling)
  Sender: FDA-Public Use
  Company Number: US-ASTRAZENECA-2006UW08021

PATIENT
  Sex: Female
  Weight: 113.4 kg

DRUGS (2)
  1. SEROQUEL [Suspect]
     Indication: SLEEP DISORDER
     Route: 048
     Dates: start: 20041018, end: 20050214
  2. PRINIVIL [Concomitant]
     Route: 048
     Dates: start: 20041124

REACTIONS (1)
  - ILL-DEFINED DISORDER [None]
